FAERS Safety Report 5659343-6 (Version None)
Quarter: 2008Q1

REPORT INFORMATION
  Report Type: 
  Country: None (occurrence: None)
  Receive Date: 20080311
  Receipt Date: 20080226
  Transmission Date: 20080703
  Serious: Yes (Hospitalization)
  Sender: FDA-Public Use
  Company Number: US-JNJFOC-20080206106

PATIENT
  Age: 76 Year
  Sex: Female

DRUGS (6)
  1. ASPIRIN [Suspect]
     Indication: CORONARY ARTERY DISEASE
  2. SPIRONOLACTONE [Concomitant]
     Indication: HEPATIC CIRRHOSIS
  3. FUROSEMIDE [Concomitant]
     Indication: HEPATIC CIRRHOSIS
  4. OMEPRAZOLE [Concomitant]
     Indication: GASTROOESOPHAGEAL REFLUX DISEASE
  5. GABAPENTIN [Concomitant]
     Indication: BACK PAIN
  6. GABAPENTIN [Concomitant]
     Indication: NECK PAIN

REACTIONS (1)
  - MEDIASTINAL HAEMATOMA [None]
